FAERS Safety Report 5940981-8 (Version None)
Quarter: 2008Q4

REPORT INFORMATION
  Report Type: 
  Country: None (occurrence: None)
  Receive Date: 20081104
  Receipt Date: 20081028
  Transmission Date: 20090506
  Serious: Yes (Other)
  Sender: FDA-Public Use
  Company Number: PHBS2008FR06163

PATIENT
  Age: 28 Year
  Sex: Female

DRUGS (1)
  1. BROMOCRIPTINE MESYLATE [Suspect]

REACTIONS (3)
  - CEREBROVASCULAR ACCIDENT [None]
  - ISCHAEMIA [None]
  - NUCLEAR MAGNETIC RESONANCE IMAGING ABNORMAL [None]
